FAERS Safety Report 18649022 (Version 1)
Quarter: 2020Q4

REPORT INFORMATION
  Report Type: Spontaneous
  Country: US (occurrence: US)
  Receive Date: 20201222
  Receipt Date: 20201222
  Transmission Date: 20210114
  Serious: No
  Sender: FDA-Public Use
  Company Number: US-ELI_LILLY_AND_COMPANY-US202012010914

PATIENT
  Sex: Male

DRUGS (2)
  1. NOVOLIN R [Concomitant]
     Active Substance: INSULIN HUMAN
     Indication: DIABETES MELLITUS
     Dosage: UNK UNK, BID
  2. INSULIN LISPRO [Suspect]
     Active Substance: INSULIN LISPRO
     Indication: DIABETES MELLITUS
     Dosage: 10 U, TID (5-10 U BEFORE EVERY MEAL)
     Route: 058
     Dates: start: 2018

REACTIONS (1)
  - Blood glucose increased [Recovering/Resolving]
